FAERS Safety Report 20565538 (Version 1)
Quarter: 2022Q1

REPORT INFORMATION
  Report Type: Spontaneous
  Country: US (occurrence: US)
  Receive Date: 20220308
  Receipt Date: 20220308
  Transmission Date: 20220423
  Serious: Yes (Life-Threatening, Hospitalization, Other)
  Sender: FDA-Public Use
  Company Number: US-MLMSERVICE-20220216-3376987-1

PATIENT
  Age: 47 Year
  Sex: Female

DRUGS (4)
  1. ACETAMINOPHEN [Suspect]
     Active Substance: ACETAMINOPHEN
     Indication: Intentional overdose
     Dosage: UNK, UNK
     Route: 048
  2. ASPIRIN [Suspect]
     Active Substance: ASPIRIN
     Indication: Intentional overdose
     Dosage: UNK, UNK
     Route: 048
  3. QUETIAPINE [Concomitant]
     Active Substance: QUETIAPINE
     Indication: Product used for unknown indication
     Route: 048
  4. ZOLPIDEM [Concomitant]
     Active Substance: ZOLPIDEM TARTRATE
     Indication: Product used for unknown indication
     Route: 048

REACTIONS (12)
  - Hyperhidrosis [Recovered/Resolved]
  - Mental status changes [Recovered/Resolved]
  - Blood pH decreased [Recovered/Resolved]
  - Anion gap increased [Recovered/Resolved]
  - Drug level increased [Recovered/Resolved]
  - Muscle rigidity [Recovered/Resolved]
  - Tremor [Recovered/Resolved]
  - Toxicity to various agents [Recovered/Resolved]
  - Blood lactic acid increased [Recovered/Resolved]
  - Clonus [Recovered/Resolved]
  - Tachypnoea [Recovered/Resolved]
  - Intentional overdose [Recovered/Resolved]
